FAERS Safety Report 9219684 (Version 1)
Quarter: 2013Q2

REPORT INFORMATION
  Report Type: Spontaneous
  Country: AU (occurrence: AU)
  Receive Date: 20130409
  Receipt Date: 20130409
  Transmission Date: 20140414
  Serious: Yes (Death, Hospitalization)
  Sender: FDA-Public Use
  Company Number: AU-ROCHE-1206806

PATIENT
  Age: 91 Year
  Sex: Female

DRUGS (1)
  1. METALYSE [Suspect]
     Indication: PRODUCT USED FOR UNKNOWN INDICATION
     Route: 065
     Dates: start: 20110218, end: 20110218

REACTIONS (3)
  - Death [Fatal]
  - Respiratory arrest [Unknown]
  - Ventricular tachycardia [Unknown]
